FAERS Safety Report 4917757-3 (Version None)
Quarter: 2006Q1

REPORT INFORMATION
  Report Type: 
  Country: None (occurrence: None)
  Receive Date: 20060221
  Receipt Date: 20060213
  Transmission Date: 20060701
  Serious: Yes (Other)
  Sender: FDA-Public Use
  Company Number: US-BRISTOL-MYERS SQUIBB COMPANY-13286828

PATIENT
  Age: 80 Year
  Sex: Female

DRUGS (7)
  1. GATIFLOXACIN [Suspect]
     Indication: PNEUMONIA
     Route: 042
  2. CEFEPIME HCL [Concomitant]
     Indication: PNEUMONIA
     Route: 042
  3. METRONIDAZOLE [Concomitant]
     Indication: PNEUMONIA
     Route: 042
  4. ENTERAL NUTRITION [Concomitant]
  5. SIMVASTATIN [Concomitant]
  6. DILTIAZEM HCL [Concomitant]
  7. LANSOPRAZOLE [Concomitant]

REACTIONS (2)
  - HEPATIC FUNCTION ABNORMAL [None]
  - HYPOGLYCAEMIA [None]
